FAERS Safety Report 20825498 (Version 1)
Quarter: 2022Q2

REPORT INFORMATION
  Report Type: Spontaneous
  Country: US (occurrence: US)
  Receive Date: 20220513
  Receipt Date: 20220513
  Transmission Date: 20220720
  Serious: No
  Sender: FDA-Public Use
  Company Number: US-SUNOVION-2022SUN001522

PATIENT
  Age: 15 Year
  Sex: Male

DRUGS (1)
  1. LATUDA [Suspect]
     Active Substance: LURASIDONE HYDROCHLORIDE
     Indication: Bipolar disorder
     Dosage: 100 MG(80 + 20MG)
     Route: 048

REACTIONS (2)
  - Aggression [Unknown]
  - Therapy interrupted [Unknown]
